FAERS Safety Report 5460898-5 (Version None)
Quarter: 2007Q3

REPORT INFORMATION
  Report Type: 
  Country: None (occurrence: None)
  Receive Date: 20070827
  Receipt Date: 20061007
  Transmission Date: 20080115
  Serious: Yes (Other)
  Sender: FDA-Public Use
  Company Number: 2006099437

PATIENT
  Age: 56 Year
  Sex: Male
  Weight: 79.3795 kg

DRUGS (2)
  1. VFEND [Suspect]
     Indication: MENINGITIS
     Dosage: 800 MG (200 MG, 1 IN 1 D), ORAL
     Route: 048
     Dates: start: 20051225, end: 20060814
  2. ATENOLOL [Concomitant]

REACTIONS (3)
  - ASTHENIA [None]
  - MENINGITIS COCCIDIOIDES [None]
  - MYOPATHY [None]
